FAERS Safety Report 6257029-0 (Version None)
Quarter: 2009Q3

REPORT INFORMATION
  Report Type: 
  Country: None (occurrence: None)
  Receive Date: 20090706
  Receipt Date: 20090626
  Transmission Date: 20100115
  Serious: Yes (Hospitalization)
  Sender: FDA-Public Use
  Company Number: A0792323A

PATIENT
  Sex: Male
  Weight: 98.9 kg

DRUGS (4)
  1. ELTROMBOPAG [Suspect]
     Indication: THROMBOCYTOPENIA
     Dosage: 25MG PER DAY
     Route: 048
     Dates: start: 20090323, end: 20090406
  2. BLINDED TRIAL MEDICATION [Suspect]
     Indication: THROMBOCYTOPENIA
     Dosage: 25MG PER DAY
     Route: 048
     Dates: start: 20090407
  3. PEGASYS [Suspect]
     Dosage: 180MCG WEEKLY
     Route: 058
     Dates: start: 20090406
  4. COPEGUS [Suspect]
     Route: 048
     Dates: start: 20090406

REACTIONS (4)
  - COLITIS [None]
  - DIZZINESS [None]
  - DYSPNOEA [None]
  - SEPTIC SHOCK [None]
